FAERS Safety Report 16711799 (Version 2)
Quarter: 2019Q3

REPORT INFORMATION
  Report Type: Spontaneous
  Country: US (occurrence: US)
  Receive Date: 20190816
  Receipt Date: 20190930
  Transmission Date: 20191004
  Serious: No
  Sender: FDA-Public Use
  Company Number: US-SA-2019SA226391

PATIENT
  Age: 48 Year
  Sex: Female

DRUGS (3)
  1. LEMTRADA [Suspect]
     Active Substance: ALEMTUZUMAB
     Indication: MULTIPLE SCLEROSIS
     Dosage: 12 MG, QD
     Route: 041
     Dates: start: 201902
  2. COLCHICINE. [Concomitant]
     Active Substance: COLCHICINE
     Dosage: 0.5 G, QD
     Route: 048
  3. ACYCLOVIR [ACICLOVIR] [Concomitant]
     Active Substance: ACYCLOVIR
     Dosage: 400 MG, 2QD

REACTIONS (22)
  - Undifferentiated connective tissue disease [Unknown]
  - Hot flush [Unknown]
  - Joint stiffness [Unknown]
  - Temperature intolerance [Unknown]
  - Myalgia [Unknown]
  - Paraesthesia [Unknown]
  - Joint swelling [Unknown]
  - Hypoaesthesia [Unknown]
  - Feeling hot [Unknown]
  - Hyperhidrosis [Unknown]
  - Back pain [Unknown]
  - Fatigue [Unknown]
  - Peripheral swelling [Unknown]
  - Plantar fasciitis [Unknown]
  - Pain in extremity [Unknown]
  - Arthralgia [Unknown]
  - Weight increased [Unknown]
  - Cyst [Unknown]
  - Chest pain [Unknown]
  - Dry mouth [Unknown]
  - Cardiolipin antibody positive [Unknown]
  - Antinuclear antibody positive [Unknown]
